FAERS Safety Report 22219734 (Version 2)
Quarter: 2023Q4

REPORT INFORMATION
  Report Type: Report from Study
  Country: US (occurrence: US)
  Receive Date: 20230417
  Receipt Date: 20231203
  Transmission Date: 20240109
  Serious: Yes (Hospitalization, Other)
  Sender: FDA-Public Use
  Company Number: US-ABBVIE-4731043

PATIENT
  Sex: Female

DRUGS (1)
  1. VENCLEXTA [Suspect]
     Active Substance: VENETOCLAX
     Indication: Non-Hodgkin^s lymphoma
     Dosage: FORM STRENGTH: 100 MILLIGRAM?TAKE 4 TABLETS (400 MG TOTAL) BY MOUTH DAILY FOR 90 DAYS
     Route: 048

REACTIONS (4)
  - Brain neoplasm malignant [Not Recovered/Not Resolved]
  - Urinary tract infection [Unknown]
  - COVID-19 [Unknown]
  - Off label use [Unknown]
